FAERS Safety Report 15524520 (Version 2)
Quarter: 2018Q4

REPORT INFORMATION
  Report Type: Report from Study
  Country: BE (occurrence: BE)
  Receive Date: 20181019
  Receipt Date: 20181116
  Transmission Date: 20190205
  Serious: Yes (Hospitalization)
  Sender: FDA-Public Use
  Company Number: BE-REGENERON PHARMACEUTICALS, INC.-2018-25710

PATIENT

DRUGS (19)
  1. CACIT VITAMINE D3 [Concomitant]
     Active Substance: CALCIUM CARBONATE\CHOLECALCIFEROL
     Indication: SUPPLEMENTATION THERAPY
     Dosage: 1 SACHET, QD
     Route: 048
     Dates: start: 20101231, end: 201805
  2. LYRICA [Concomitant]
     Active Substance: PREGABALIN
     Indication: PROPHYLAXIS
     Dosage: 300 MG, BID
     Route: 048
     Dates: start: 20160922
  3. TAMSULOSINE                        /01280301/ [Concomitant]
     Active Substance: TAMSULOSIN
     Indication: PROSTATOMEGALY
     Dosage: 0.4 MG, QD
     Route: 048
     Dates: start: 201804
  4. CEFTRIAXON [Concomitant]
     Active Substance: CEFTRIAXONE
     Indication: INFECTION
     Dosage: 2 G, QD
     Route: 042
     Dates: start: 20180522, end: 20180528
  5. MORPHINE [Concomitant]
     Active Substance: MORPHINE
     Indication: PAIN IN EXTREMITY
     Dosage: 500 MG, QD
     Route: 037
     Dates: start: 20180514, end: 20180516
  6. CEMIPLIMAB [Suspect]
     Active Substance: CEMIPLIMAB
     Indication: BASAL CELL CARCINOMA
     Dosage: 350 MG, Q3W
     Route: 042
     Dates: start: 20180201, end: 20180426
  7. CACIT VITAMINE D3 [Concomitant]
     Active Substance: CALCIUM CARBONATE\CHOLECALCIFEROL
     Dosage: 1 IU, QD
     Route: 048
     Dates: start: 20180524
  8. XGEVA [Concomitant]
     Active Substance: DENOSUMAB
     Indication: PROPHYLAXIS
     Dosage: 120 MG, Q4WK
     Route: 058
     Dates: start: 20160701
  9. DAFALGAN [Concomitant]
     Active Substance: ACETAMINOPHEN
     Indication: PAIN IN EXTREMITY
  10. PANTOMED                           /00178901/ [Concomitant]
     Active Substance: DEXPANTHENOL
     Indication: PROPHYLAXIS
     Dosage: 1 TABLET, QD
     Route: 048
     Dates: start: 20120301
  11. MELOXICAM. [Concomitant]
     Active Substance: MELOXICAM
     Indication: PAIN IN EXTREMITY
     Dosage: 7.5 MG, QD
     Route: 048
     Dates: start: 20180201, end: 201805
  12. DAFALGAN [Concomitant]
     Active Substance: ACETAMINOPHEN
     Indication: MUSCULOSKELETAL PAIN
     Dosage: 1 G, AS NECESSARY
     Route: 048
     Dates: start: 20151211
  13. BISOPROLOL [Concomitant]
     Active Substance: BISOPROLOL
     Indication: HYPERTENSION
     Dosage: 5 MG, QD
     Route: 048
     Dates: start: 20180222
  14. ELIQUIS [Concomitant]
     Active Substance: APIXABAN
     Indication: PROPHYLAXIS
     Dosage: 5 MG, BID
     Route: 048
     Dates: start: 20151211, end: 20180608
  15. CETIRIZINE [Concomitant]
     Active Substance: CETIRIZINE HYDROCHLORIDE
     Indication: PROPHYLAXIS
     Dosage: 10 MG, AS NECESSARY
     Route: 048
     Dates: start: 20180201
  16. TERAZOSINE                         /00685101/ [Concomitant]
     Indication: PROSTATOMEGALY
     Dosage: 2 MG, QD
     Route: 048
     Dates: start: 20150116
  17. OXYNORM [Concomitant]
     Active Substance: OXYCODONE HYDROCHLORIDE
     Indication: PAIN IN EXTREMITY
     Dosage: 5 MG, AS NECESSARY
     Route: 048
     Dates: start: 20180201
  18. FLAMINAL                           /00926503/ [Concomitant]
     Indication: HEAD AND NECK CANCER
     Dosage: 1 UNIT, QD
     Route: 061
     Dates: start: 201805
  19. DUROGESIC [Concomitant]
     Active Substance: FENTANYL
     Indication: PAIN IN EXTREMITY
     Dosage: 12 ?G/H EVERY 3 DAYS
     Route: 062
     Dates: start: 20180222, end: 20180524

REACTIONS (4)
  - Infection [Recovered/Resolved]
  - Lymphoproliferative disorder [Recovered/Resolved]
  - Autoimmune myocarditis [Recovered/Resolved]
  - Somnolence [Recovered/Resolved]

NARRATIVE: CASE EVENT DATE: 20180516
